FAERS Safety Report 9702965 (Version 1)
Quarter: 2013Q4

REPORT INFORMATION
  Report Type: Spontaneous
  Country: CA (occurrence: CA)
  Receive Date: 20131122
  Receipt Date: 20131122
  Transmission Date: 20140711
  Serious: Yes (Other)
  Sender: FDA-Public Use
  Company Number: CA-ASTRAZENECA-2013SE84417

PATIENT
  Age: 55 Year
  Sex: Female

DRUGS (2)
  1. SYMBICORT [Suspect]
     Indication: ASTHMA
     Dosage: 200 MCG, TWO TIMES A DAY
     Route: 055
     Dates: start: 201211
  2. NASONEX [Concomitant]
     Dosage: TWO INHALATIONS BID
     Route: 045

REACTIONS (2)
  - Hot flush [Not Recovered/Not Resolved]
  - Palpitations [Not Recovered/Not Resolved]
